FAERS Safety Report 24571758 (Version 1)
Quarter: 2024Q4

REPORT INFORMATION
  Report Type: Spontaneous
  Country: US (occurrence: US)
  Receive Date: 20241101
  Receipt Date: 20241101
  Transmission Date: 20250115
  Serious: Yes (Other)
  Sender: CELLTRION
  Company Number: US-CELLTRION INC.-2024US026414

PATIENT

DRUGS (1)
  1. TRUXIMA [Suspect]
     Active Substance: RITUXIMAB-ABBS
     Indication: Haemophilia A with anti factor VIII
     Dosage: UNK
     Dates: start: 20240917

REACTIONS (3)
  - Arthritis reactive [Unknown]
  - Pyrexia [Unknown]
  - Intentional product use issue [Unknown]
